FAERS Safety Report 17622940 (Version 1)
Quarter: 2020Q2

REPORT INFORMATION
  Report Type: Spontaneous
  Country: DE (occurrence: DE)
  Receive Date: 20200403
  Receipt Date: 20200403
  Transmission Date: 20200713
  Serious: Yes (Hospitalization)
  Sender: FDA-Public Use
  Company Number: DE-US-PROVELL PHARMACEUTICALS LLC-E2B_90076258

PATIENT
  Age: 8 Month
  Sex: Female
  Weight: 7 kg

DRUGS (1)
  1. L-THYROXIN [Suspect]
     Active Substance: LEVOTHYROXINE SODIUM
     Indication: ACCIDENTAL EXPOSURE TO PRODUCT
     Dosage: 100UG
     Route: 048
     Dates: start: 20190811, end: 20190811

REACTIONS (8)
  - Wrong product administered [Recovered/Resolved]
  - Accidental exposure to product by child [Recovered/Resolved]
  - Hypotonia [Recovered/Resolved]
  - Restlessness [Recovered/Resolved]
  - Vomiting [Recovered/Resolved]
  - Fatigue [Recovered/Resolved]
  - Hypotension [Recovered/Resolved]
  - Hypophagia [Recovered/Resolved]

NARRATIVE: CASE EVENT DATE: 20190811
